FAERS Safety Report 8893986 (Version 1)
Quarter: 2012Q4

REPORT INFORMATION
  Report Type: 
  Country: CA (occurrence: CA)
  Receive Date: 20121107
  Receipt Date: 20121107
  Transmission Date: 20130627
  Serious: Yes (Death, Hospitalization, Other)
  Sender: FDA-Public Use
  Company Number: PHHO2005CA04908

PATIENT
  Sex: Male

DRUGS (4)
  1. SANDOSTATIN LAR (PATIENT BASIS) [Suspect]
     Indication: HEPATIC NEOPLASM MALIGNANT
     Dosage: 20 mg, every 4 weeks
     Dates: start: 20041118
  2. APO-FUROSEMIDE [Concomitant]
  3. NORVASC [Concomitant]
  4. SYNTHROID [Concomitant]

REACTIONS (7)
  - Sepsis [Fatal]
  - Localised infection [Unknown]
  - Abdominal distension [Unknown]
  - Anaemia [Unknown]
  - Fatigue [Unknown]
  - Oedema peripheral [Unknown]
  - Hyperglycaemia [Unknown]
